FAERS Safety Report 7130538-8 (Version None)
Quarter: 2010Q4

REPORT INFORMATION
  Report Type: 
  Country: None (occurrence: None)
  Receive Date: 20101029
  Receipt Date: 20100421
  Transmission Date: 20110411
  Serious: No
  Sender: FDA-Public Use
  Company Number: US-001915

PATIENT
  Sex: Male

DRUGS (5)
  1. FIRMAGON [Suspect]
     Indication: PROSTATE CANCER
     Dosage: (240 MG SUBCUTANEOUS), (80 MG 1X/MONTH SUBCUTANEOUS)
     Route: 058
     Dates: start: 20100126, end: 20100126
  2. LISINOPRIL [Concomitant]
  3. ZOCOR [Concomitant]
  4. ASPIRINA 03 [Concomitant]
  5. NIASPAN [Concomitant]

REACTIONS (1)
  - MYALGIA [None]
